FAERS Safety Report 5116839-3 (Version None)
Quarter: 2006Q3

REPORT INFORMATION
  Report Type: 
  Country: None (occurrence: None)
  Receive Date: 20060925
  Receipt Date: 20060908
  Transmission Date: 20061208
  Serious: Yes (Hospitalization, Other)
  Sender: FDA-Public Use
  Company Number: 2006SP000894

PATIENT
  Age: 63 Year
  Sex: Female

DRUGS (2)
  1. AERIUS (DESLORATADINE) (DESLORATADINE) [Suspect]
     Indication: URTICARIA
     Dosage: 5 MG; QD; PO
     Route: 048
     Dates: start: 20060810, end: 20060824
  2. BACTRIM [Suspect]
     Dosage: 2 DF; QD; PO
     Route: 048
     Dates: start: 20060810, end: 20060823

REACTIONS (1)
  - PANCREATITIS ACUTE [None]
